FAERS Safety Report 24015184 (Version 1)
Quarter: 2024Q2

REPORT INFORMATION
  Report Type: Spontaneous
  Country: GB (occurrence: GB)
  Receive Date: 20240626
  Receipt Date: 20240626
  Transmission Date: 20240715
  Serious: Yes (Other)
  Sender: FDA-Public Use
  Company Number: GB-AMRYT PHARMACEUTICALS DAC-AEGR007214

PATIENT

DRUGS (1)
  1. LOMITAPIDE [Suspect]
     Active Substance: LOMITAPIDE
     Indication: Familial hypertriglyceridaemia
     Dosage: 10 MILLIGRAM
     Route: 048

REACTIONS (3)
  - Pancreatitis acute [Unknown]
  - Treatment noncompliance [Unknown]
  - Off label use [Not Recovered/Not Resolved]
